FAERS Safety Report 23780980 (Version 1)
Quarter: 2024Q2

REPORT INFORMATION
  Report Type: Spontaneous
  Country: CA (occurrence: CA)
  Receive Date: 20240425
  Receipt Date: 20240425
  Transmission Date: 20240716
  Serious: Yes (Hospitalization, Other)
  Sender: FDA-Public Use
  Company Number: CA-BAYER-2024A060752

PATIENT
  Age: 85 Year
  Sex: Male

DRUGS (4)
  1. XARELTO [Suspect]
     Active Substance: RIVAROXABAN
     Indication: Product used for unknown indication
     Route: 048
  2. ALLOPURINOL [Concomitant]
     Active Substance: ALLOPURINOL
  3. EZETIMIBE [Concomitant]
     Active Substance: EZETIMIBE
  4. RABEPRAZOLE [Concomitant]
     Active Substance: RABEPRAZOLE

REACTIONS (3)
  - Haematochezia [Recovering/Resolving]
  - Nausea [Recovering/Resolving]
  - Upper gastrointestinal haemorrhage [Recovering/Resolving]
